FAERS Safety Report 5234749-8 (Version None)
Quarter: 2007Q1

REPORT INFORMATION
  Report Type: 
  Country: None (occurrence: None)
  Receive Date: 20070209
  Receipt Date: 20070130
  Transmission Date: 20070707
  Serious: Yes (Life-Threatening, Hospitalization)
  Sender: FDA-Public Use
  Company Number: JP-ELI_LILLY_AND_COMPANY-JP200701004841

PATIENT
  Age: 38 Year
  Sex: Female

DRUGS (1)
  1. HUMULIN N [Suspect]
     Dosage: 1000 U, DAILY (1/D)
     Route: 058
     Dates: start: 20070115, end: 20070115

REACTIONS (5)
  - CONVULSION [None]
  - HYPOGLYCAEMIA [None]
  - INTENTIONAL OVERDOSE [None]
  - LOSS OF CONSCIOUSNESS [None]
  - SUICIDE ATTEMPT [None]
